FAERS Safety Report 16760058 (Version 1)
Quarter: 2019Q4

REPORT INFORMATION
  Report Type: Spontaneous
  Country: US (occurrence: US)
  Receive Date: 20190829
  Receipt Date: 20190829
  Transmission Date: 20200122
  Serious: No
  Sender: FDA-Public Use
  Company Number: None

PATIENT
  Age: 42 Year
  Sex: Male
  Weight: 83.9 kg

DRUGS (2)
  1. CLOZAPINE. [Suspect]
     Active Substance: CLOZAPINE
  2. CLOZAPINE. [Suspect]
     Active Substance: CLOZAPINE
     Dates: start: 20190802, end: 20190817

REACTIONS (1)
  - Tubulointerstitial nephritis [None]

NARRATIVE: CASE EVENT DATE: 20190816
